FAERS Safety Report 8858386 (Version 1)
Quarter: 2012Q4

REPORT INFORMATION
  Report Type: 
  Country: US (occurrence: US)
  Receive Date: 20121024
  Receipt Date: 20121024
  Transmission Date: 20130627
  Serious: No
  Sender: FDA-Public Use
  Company Number: US-AMGEN-USASP2012001089

PATIENT
  Age: 60 Year
  Sex: Male

DRUGS (6)
  1. ENBREL [Suspect]
     Indication: PRODUCT USED FOR UNKNOWN INDICATION
     Dosage: 50 mg, qwk
     Route: 058
  2. METHOTREXATE [Concomitant]
  3. CENTRUM                            /00554501/ [Concomitant]
  4. CALTRATE                           /00751519/ [Concomitant]
  5. FOLIC ACID [Concomitant]
     Dosage: 1 mg, UNK
  6. CITRACAL + D                       /01438101/ [Concomitant]

REACTIONS (1)
  - Nasopharyngitis [Unknown]
